FAERS Safety Report 24880404 (Version 1)
Quarter: 2025Q1

REPORT INFORMATION
  Report Type: Spontaneous
  Country: CA (occurrence: CA)
  Receive Date: 20250123
  Receipt Date: 20250123
  Transmission Date: 20250408
  Serious: Yes (Death, Other)
  Sender: MERCK
  Company Number: CA-009507513-2501CAN005183

PATIENT
  Age: 89 Year
  Sex: Male

DRUGS (8)
  1. ONCOTICE [Suspect]
     Active Substance: BACILLUS CALMETTE-GUERIN SUBSTRAIN TICE LIVE ANTIGEN
     Indication: Prophylaxis
     Dosage: 50 MILLIGRAM, EVERY 6 WEEKS
     Route: 043
  2. ONCOTICE [Suspect]
     Active Substance: BACILLUS CALMETTE-GUERIN SUBSTRAIN TICE LIVE ANTIGEN
     Indication: Intravesical immunotherapy
  3. AMLODIPINE [Concomitant]
     Active Substance: AMLODIPINE BESYLATE
     Route: 065
  4. BISOPROLOL [Concomitant]
     Active Substance: BISOPROLOL
     Route: 065
  5. HYDROCHLOROTHIAZIDE [Concomitant]
     Active Substance: HYDROCHLOROTHIAZIDE
     Route: 065
  6. IRBESARTAN [Concomitant]
     Active Substance: IRBESARTAN
     Route: 065
  7. ROSUVASTATIN [Concomitant]
     Active Substance: ROSUVASTATIN
     Route: 065
  8. DICLOFENAC DIETHYLAMINE [Concomitant]
     Active Substance: DICLOFENAC DIETHYLAMINE
     Route: 065

REACTIONS (13)
  - Septic shock [Fatal]
  - Acute kidney injury [Fatal]
  - Acute myocardial infarction [Fatal]
  - Disseminated intravascular coagulation [Fatal]
  - Ischaemic hepatitis [Fatal]
  - Lactic acidosis [Fatal]
  - Melaena [Fatal]
  - Abdominal pain [Fatal]
  - Diarrhoea [Fatal]
  - Hypotension [Fatal]
  - Nausea [Fatal]
  - Pyrexia [Fatal]
  - Vomiting [Fatal]
